FAERS Safety Report 12691002 (Version 1)
Quarter: 2016Q3

REPORT INFORMATION
  Report Type: Spontaneous
  Country: TW (occurrence: TW)
  Receive Date: 20160826
  Receipt Date: 20160826
  Transmission Date: 20161109
  Serious: Yes (Life-Threatening, Hospitalization, Other)
  Sender: FDA-Public Use
  Company Number: TW-MYLANLABS-2016M1036234

PATIENT

DRUGS (1)
  1. CLOZAPINE. [Suspect]
     Active Substance: CLOZAPINE
     Indication: SCHIZOPHRENIA
     Route: 065

REACTIONS (9)
  - Pyrexia [Recovering/Resolving]
  - Hallucination, auditory [Unknown]
  - Cough [Recovering/Resolving]
  - Abnormal behaviour [Unknown]
  - Oropharyngeal pain [Recovering/Resolving]
  - Dyspnoea [Recovering/Resolving]
  - Pneumonia aspiration [Recovering/Resolving]
  - Airway complication of anaesthesia [Recovering/Resolving]
  - Condition aggravated [Unknown]
